FAERS Safety Report 14806509 (Version 1)
Quarter: 2018Q2

REPORT INFORMATION
  Report Type: Spontaneous
  Country: US (occurrence: US)
  Receive Date: 20180401
  Receipt Date: 20180401
  Transmission Date: 20180711
  Serious: No
  Sender: FDA-Public Use
  Company Number: None

PATIENT
  Age: 69 Year
  Sex: Female
  Weight: 62.55 kg

DRUGS (9)
  1. FISH OIL [Concomitant]
     Active Substance: FISH OIL
  2. CALCIUM [Concomitant]
     Active Substance: CALCIUM
  3. PROLIA [Suspect]
     Active Substance: DENOSUMAB
     Indication: OSTEOPENIA
     Route: 058
     Dates: start: 20170717, end: 20180117
  4. HYDROCHLOROTHIAZIDE. [Concomitant]
     Active Substance: HYDROCHLOROTHIAZIDE
  5. TRAMADOL HYDROCHLORIDE AND ACETAMINOPHEN [Concomitant]
     Active Substance: ACETAMINOPHEN\TRAMADOL HYDROCHLORIDE
  6. ANASTROZOLE. [Concomitant]
     Active Substance: ANASTROZOLE
  7. MULTIPLE VITAMIN [Concomitant]
     Active Substance: VITAMINS
  8. LOSARTAN. [Concomitant]
     Active Substance: LOSARTAN
  9. TURMERIC [Concomitant]
     Active Substance: HERBALS\TURMERIC

REACTIONS (2)
  - Neck pain [None]
  - Musculoskeletal stiffness [None]

NARRATIVE: CASE EVENT DATE: 20170917
